FAERS Safety Report 11026011 (Version 3)
Quarter: 2015Q2

REPORT INFORMATION
  Report Type: Spontaneous
  Country: US (occurrence: US)
  Receive Date: 20150414
  Receipt Date: 20150616
  Transmission Date: 20150821
  Serious: Yes (Hospitalization, Disabling, Other)
  Sender: FDA-Public Use
  Company Number: US-009507513-1112USA01474

PATIENT
  Sex: Female
  Weight: 60.32 kg

DRUGS (3)
  1. FOSAMAX [Suspect]
     Active Substance: ALENDRONATE SODIUM
     Indication: BONE DENSITY DECREASED
     Dosage: 75 MG, QW
     Route: 048
     Dates: start: 2002, end: 2005
  2. FOSAMAX PLUS D [Suspect]
     Active Substance: ALENDRONATE SODIUM\CHOLECALCIFEROL
     Indication: BONE DENSITY DECREASED
     Dosage: 70/5600 MG, QW
     Route: 048
     Dates: start: 2005, end: 20100402
  3. ALENDRONATE SODIUM. [Suspect]
     Active Substance: ALENDRONATE SODIUM
     Indication: BONE DENSITY DECREASED
     Dosage: 75 MG, QW
     Route: 048
     Dates: start: 2009

REACTIONS (19)
  - Limb injury [Unknown]
  - Femur fracture [Unknown]
  - Bunion operation [Unknown]
  - Fracture nonunion [Unknown]
  - Intramedullary rod insertion [Unknown]
  - Osteoporosis [Unknown]
  - Osteopenia [Unknown]
  - Femur fracture [Recovering/Resolving]
  - Tonsillectomy [Unknown]
  - Foot fracture [Unknown]
  - Pain in extremity [Unknown]
  - Arthralgia [Unknown]
  - Dyspepsia [Unknown]
  - Foot deformity [Unknown]
  - Medical device removal [Unknown]
  - Hypertension [Unknown]
  - Uterine dilation and curettage [Unknown]
  - Femur fracture [Recovering/Resolving]
  - Hypercholesterolaemia [Unknown]

NARRATIVE: CASE EVENT DATE: 200412
